FAERS Safety Report 24235022 (Version 1)
Quarter: 2024Q3

REPORT INFORMATION
  Report Type: Spontaneous
  Country: US (occurrence: US)
  Receive Date: 20240821
  Receipt Date: 20240821
  Transmission Date: 20241017
  Serious: No
  Sender: Solventum
  Company Number: US-3M-2024-US-039947

PATIENT
  Age: 74 Year
  Sex: Male
  Weight: 58.97 kg

DRUGS (7)
  1. PERIDEX [Suspect]
     Active Substance: CHLORHEXIDINE GLUCONATE
     Indication: Dental disorder prophylaxis
     Dosage: 15 MLS SWISHED AND SPIT IRREGULARLY
     Route: 048
     Dates: start: 202405, end: 20240710
  2. GABAPENTIN [Concomitant]
     Active Substance: GABAPENTIN
  3. LIPITOR [Concomitant]
     Active Substance: ATORVASTATIN CALCIUM
  4. PANTOPRAZOLE [Concomitant]
     Active Substance: PANTOPRAZOLE
  5. ASPIRIN [Concomitant]
     Active Substance: ASPIRIN
     Dosage: 81 MG
  6. COLACE [Concomitant]
     Active Substance: DOCUSATE SODIUM
  7. TELMISARTAN [Concomitant]
     Active Substance: TELMISARTAN

REACTIONS (3)
  - Oral discomfort [Not Recovered/Not Resolved]
  - Intentional product misuse [Recovered/Resolved]
  - Product use in unapproved indication [Recovered/Resolved]

NARRATIVE: CASE EVENT DATE: 20240501
